FAERS Safety Report 7630544-0 (Version None)
Quarter: 2011Q3

REPORT INFORMATION
  Report Type: 
  Country: None (occurrence: None)
  Receive Date: 20110722
  Receipt Date: 20110719
  Transmission Date: 20111222
  Serious: Yes (Life-Threatening, Hospitalization)
  Sender: FDA-Public Use
  Company Number: PHHY2011US34207

PATIENT
  Sex: Female
  Weight: 59.864 kg

DRUGS (5)
  1. COUMADIN [Concomitant]
     Indication: PULMONARY EMBOLISM
     Dosage: 5 MG, UNK
     Route: 048
  2. FOLATE SODIUM [Concomitant]
     Indication: HAEMOLYSIS
     Dosage: 1 MG, UNK
     Route: 048
  3. EXJADE [Suspect]
     Indication: SICKLE CELL ANAEMIA
     Dosage: 1250 MG, QD
     Route: 048
     Dates: start: 20090320, end: 20110408
  4. MORPHINE [Concomitant]
     Indication: PAIN
  5. PREVACID [Concomitant]
     Indication: GASTROOESOPHAGEAL REFLUX DISEASE
     Dosage: 30 MG, UNK
     Route: 048

REACTIONS (4)
  - HEPATIC FAILURE [None]
  - SICKLE CELL ANAEMIA WITH CRISIS [None]
  - RESPIRATORY FAILURE [None]
  - MULTI-ORGAN FAILURE [None]
